FAERS Safety Report 20706278 (Version 1)
Quarter: 2022Q2

REPORT INFORMATION
  Report Type: Spontaneous
  Country: US (occurrence: US)
  Receive Date: 20220413
  Receipt Date: 20220413
  Transmission Date: 20220721
  Serious: No
  Sender: FDA-Public Use
  Company Number: USA--2022-US-000008

PATIENT
  Sex: Male

DRUGS (2)
  1. TROPICAMIDE [Suspect]
     Active Substance: TROPICAMIDE
     Dates: start: 20220101, end: 20220104
  2. TAMSULOSIN HYDROCHLORIDE [Concomitant]
     Active Substance: TAMSULOSIN HYDROCHLORIDE

REACTIONS (2)
  - Mydriasis [Recovered/Resolved]
  - Photophobia [Recovered/Resolved]

NARRATIVE: CASE EVENT DATE: 20220102
